FAERS Safety Report 18381041 (Version 2)
Quarter: 2021Q1

REPORT INFORMATION
  Report Type: Spontaneous
  Country: SE (occurrence: SE)
  Receive Date: 20201014
  Receipt Date: 20210319
  Transmission Date: 20210419
  Serious: Yes (Hospitalization)
  Sender: FDA-Public Use
  Company Number: SE-ACCORD-204985

PATIENT
  Age: 74 Year
  Sex: Male
  Weight: 93 kg

DRUGS (3)
  1. ZOLEDRONIC ACID [Suspect]
     Active Substance: ZOLEDRONIC ACID
     Indication: OSTEOPOROSIS
     Dosage: THREE INJECTIONS TOTAL
     Dates: start: 2016, end: 2019
  2. PROLIA [Suspect]
     Active Substance: DENOSUMAB
     Indication: OSTEOPOROSIS
     Dosage: ONLY INJECTION WAS GIVEN ON 2020?03?24
     Dates: start: 2020, end: 2020
  3. ALENDRONATE SODIUM/ALENDRONIC ACID [Suspect]
     Active Substance: ALENDRONATE SODIUM
     Indication: OSTEOPOROSIS
     Dosage: 70 MG PER WEEK
     Route: 048
     Dates: start: 2014, end: 2016

REACTIONS (2)
  - Bone fissure [Not Recovered/Not Resolved]
  - Atypical femur fracture [Not Recovered/Not Resolved]

NARRATIVE: CASE EVENT DATE: 20200831
